FAERS Safety Report 16647115 (Version 1)
Quarter: 2019Q3

REPORT INFORMATION
  Report Type: Spontaneous
  Country: US (occurrence: US)
  Receive Date: 20190617
  Receipt Date: 20190617
  Transmission Date: 20191004
  Serious: No
  Sender: FDA-Public Use
  Company Number: None

PATIENT
  Age: 62 Year
  Sex: Female
  Weight: 68.4 kg

DRUGS (2)
  1. VERZENIO [Suspect]
     Active Substance: ABEMACICLIB
     Route: 048
     Dates: start: 20190221
  2. VERZENIO [Suspect]
     Active Substance: ABEMACICLIB
     Indication: BREAST CANCER METASTATIC
     Route: 048

REACTIONS (7)
  - Thrombophlebitis superficial [None]
  - Pyrexia [None]
  - Transaminases increased [None]
  - Dialysis [None]
  - Pancytopenia [None]
  - Acute kidney injury [None]
  - Rash [None]

NARRATIVE: CASE EVENT DATE: 20190311
